FAERS Safety Report 8079709-7 (Version None)
Quarter: 2012Q1

REPORT INFORMATION
  Report Type: 
  Country: None (occurrence: None)
  Receive Date: 20120128
  Receipt Date: 20110810
  Transmission Date: 20120608
  Serious: No
  Sender: FDA-Public Use
  Company Number: US-ABBOTT-11P-163-0845314-00

PATIENT
  Sex: Male

DRUGS (1)
  1. HUMIRA [Suspect]
     Indication: PRODUCT USED FOR UNKNOWN INDICATION

REACTIONS (5)
  - INJECTION SITE PAIN [None]
  - INCORRECT PRODUCT STORAGE [None]
  - POOR QUALITY DRUG ADMINISTERED [None]
  - INJECTION SITE REACTION [None]
  - SLUGGISHNESS [None]
